FAERS Safety Report 10399462 (Version 1)
Quarter: 2014Q3

REPORT INFORMATION
  Report Type: Spontaneous
  Country: IT (occurrence: None)
  Receive Date: 20140819
  Receipt Date: 20140819
  Transmission Date: 20150326
  Serious: Yes (Hospitalization)
  Sender: FDA-Public Use
  Company Number: AUR-APL-2014-08734

PATIENT
  Age: 85 Year
  Sex: Male

DRUGS (7)
  1. CLEXANE (ENOXAPARIN SODIUM) [Concomitant]
     Active Substance: ENOXAPARIN SODIUM
  2. SPIRIVA [Concomitant]
     Active Substance: TIOTROPIUM BROMIDE MONOHYDRATE
  3. BUDESONIDE (BUDESONIDE) [Concomitant]
     Active Substance: BUDESONIDE
  4. REPAGLINIDE. [Suspect]
     Active Substance: REPAGLINIDE
     Indication: DIABETES MELLITUS
     Route: 048
     Dates: start: 20140101, end: 20140417
  5. RAMIPRIL (RAMIPRIL) [Concomitant]
     Active Substance: RAMIPRIL
  6. METFORMIN [Suspect]
     Active Substance: METFORMIN HYDROCHLORIDE
     Indication: DIABETES MELLITUS
     Route: 048
     Dates: start: 20140101, end: 20140417
  7. FUROSEMIDE (FUROSEMIDE) [Concomitant]
     Active Substance: FUROSEMIDE

REACTIONS (4)
  - Sopor [None]
  - Overdose [None]
  - Dyspnoea [None]
  - Hypoglycaemia [None]

NARRATIVE: CASE EVENT DATE: 20140417
